FAERS Safety Report 4358065-1 (Version None)
Quarter: 2004Q2

REPORT INFORMATION
  Report Type: 
  Country: None (occurrence: None)
  Receive Date: 20040513
  Receipt Date: 20040503
  Transmission Date: 20050107
  Serious: Yes (Other)
  Sender: FDA-Public Use
  Company Number: 2004030472

PATIENT
  Sex: Female

DRUGS (1)
  1. LISTERINE (EUCALYPTOL, MENTHOL, METHYL SALICYLATE, THYMOL) [Suspect]
     Indication: DENTAL CARE
     Dosage: ORAL TOPICAL

REACTIONS (1)
  - LIP AND/OR ORAL CAVITY CANCER [None]
